FAERS Safety Report 9308936 (Version 1)
Quarter: 2013Q2

REPORT INFORMATION
  Report Type: Spontaneous
  Country: US (occurrence: US)
  Receive Date: 20130524
  Receipt Date: 20130524
  Transmission Date: 20140414
  Serious: No
  Sender: FDA-Public Use
  Company Number: US-B.I. PHARMACEUTICALS,INC./RIDGEFIELD-2013-BI-14464BP

PATIENT
  Age: 64 Year
  Sex: Male

DRUGS (3)
  1. COMBIVENT [Suspect]
     Indication: MESOTHELIOMA
     Dosage: STRENGTH: 20 MCG/100 MCG; DAILY DOSE: 160MCG/800 MCG
     Route: 055
     Dates: start: 20130514, end: 20130521
  2. COMBIVENT [Suspect]
     Dosage: STRENGTH: 18 MCG / 103 MCG; DAILY DOSE: 288 MCG / 1648 MCG
     Route: 055
     Dates: start: 2006, end: 20130513
  3. SYMBICORT [Concomitant]
     Indication: MESOTHELIOMA
     Dosage: 2 PUF
     Route: 055

REACTIONS (8)
  - Arthralgia [Not Recovered/Not Resolved]
  - Joint swelling [Not Recovered/Not Resolved]
  - Localised oedema [Not Recovered/Not Resolved]
  - Neck pain [Not Recovered/Not Resolved]
  - Pharyngeal oedema [Not Recovered/Not Resolved]
  - Local swelling [Not Recovered/Not Resolved]
  - Dysphagia [Not Recovered/Not Resolved]
  - Intentional drug misuse [Not Recovered/Not Resolved]
